FAERS Safety Report 24311647 (Version 2)
Quarter: 2024Q3

REPORT INFORMATION
  Report Type: Spontaneous
  Country: IL (occurrence: IL)
  Receive Date: 20240912
  Receipt Date: 20240925
  Transmission Date: 20241017
  Serious: No
  Sender: BAYER
  Company Number: IL-BAYER-2024A129373

PATIENT
  Age: 75 Year
  Sex: Female

DRUGS (3)
  1. KERENDIA [Suspect]
     Active Substance: FINERENONE
     Indication: Diabetic nephropathy
     Dosage: 10 MG
     Dates: start: 20230613
  2. KERENDIA [Suspect]
     Active Substance: FINERENONE
     Indication: Albuminuria
  3. Fusid [Concomitant]

REACTIONS (1)
  - Blood creatinine increased [None]
